FAERS Safety Report 9257401 (Version 1)
Quarter: 2013Q2

REPORT INFORMATION
  Report Type: Spontaneous
  Country: US (occurrence: US)
  Receive Date: 20130426
  Receipt Date: 20130426
  Transmission Date: 20140414
  Serious: No
  Sender: FDA-Public Use
  Company Number: US-PFIZER INC-2013125285

PATIENT
  Age: 60 Year
  Sex: Female
  Weight: 59.41 kg

DRUGS (7)
  1. PRISTIQ [Suspect]
     Indication: DEPRESSION
     Dosage: 50 MG, 1X/DAY
     Route: 048
  2. PRISTIQ [Suspect]
     Indication: ANXIETY
     Dosage: 100 MG, 1X/DAY
     Route: 048
  3. PRISTIQ [Suspect]
     Dosage: 50 MG, 1X/DAY
     Route: 048
     Dates: start: 2013
  4. PRISTIQ [Suspect]
     Dosage: UNK
     Route: 048
  5. PRISTIQ [Suspect]
     Dosage: 50 MG, 1X/DAY
     Route: 048
     Dates: end: 20130411
  6. PRISTIQ [Suspect]
     Dosage: UNK
     Dates: start: 20130417
  7. CLONAZEPAM [Concomitant]
     Indication: DEPRESSION
     Dosage: UNK

REACTIONS (9)
  - Drug administration error [Unknown]
  - Withdrawal syndrome [Recovering/Resolving]
  - Insomnia [Recovering/Resolving]
  - Hyperhidrosis [Recovering/Resolving]
  - Ligament sprain [Recovered/Resolved]
  - Poor quality sleep [Unknown]
  - Fear [Recovering/Resolving]
  - Drug ineffective for unapproved indication [Recovering/Resolving]
  - Off label use [Unknown]
